FAERS Safety Report 5489052-8 (Version None)
Quarter: 2007Q4

REPORT INFORMATION
  Report Type: 
  Country: None (occurrence: None)
  Receive Date: 20071018
  Receipt Date: 20071010
  Transmission Date: 20080405
  Serious: Yes (Other)
  Sender: FDA-Public Use
  Company Number: PHBS2007ES16892

PATIENT
  Age: 73 Year
  Sex: Female

DRUGS (1)
  1. LIPOSIT PROLIB [Suspect]
     Dosage: 80 MG, QD
     Route: 048
     Dates: start: 20070521, end: 20070528

REACTIONS (2)
  - HALLUCINATION [None]
  - INSOMNIA [None]
